FAERS Safety Report 5097274-3 (Version None)
Quarter: 2006Q3

REPORT INFORMATION
  Report Type: 
  Country: None (occurrence: None)
  Receive Date: 20060906
  Receipt Date: 20060904
  Transmission Date: 20061208
  Serious: Yes (Hospitalization)
  Sender: FDA-Public Use
  Company Number: PHRM2006FR02460

PATIENT
  Age: 66 Year
  Sex: Female

DRUGS (1)
  1. TRILEPTAL [Suspect]
     Indication: STATUS EPILEPTICUS
     Route: 048
     Dates: start: 20060401, end: 20060401

REACTIONS (1)
  - ENCEPHALOPATHY [None]
